FAERS Safety Report 6291621-2 (Version None)
Quarter: 2009Q3

REPORT INFORMATION
  Report Type: 
  Country: None (occurrence: None)
  Receive Date: 20090730
  Receipt Date: 20090730
  Transmission Date: 20100115
  Serious: Yes (Disabling, Other)
  Sender: FDA-Public Use
  Company Number: None

PATIENT
  Age: 50 Year
  Sex: Female
  Weight: 70.7611 kg

DRUGS (5)
  1. RISPERDAL CONSTA [Suspect]
     Indication: SCHIZOPHRENIA, PARANOID TYPE
     Dosage: 37.5 MG EVERY 2 WEEKS IM
     Route: 030
     Dates: start: 20090528, end: 20090729
  2. UNKNOWN [Concomitant]
  3. LITHIUM CARBONATE [Suspect]
  4. SIMVASTATIN [Concomitant]
  5. DIVALPROEX EXTENDED-RELEASE [Concomitant]

REACTIONS (1)
  - FOREIGN BODY TRAUMA [None]
